FAERS Safety Report 26137224 (Version 1)
Quarter: 2025Q4

REPORT INFORMATION
  Report Type: Spontaneous
  Country: JP (occurrence: JP)
  Receive Date: 20251209
  Receipt Date: 20251209
  Transmission Date: 20260117
  Serious: Yes (Disabling)
  Sender: PFIZER
  Company Number: JP-PFIZER INC-PV202500143081

PATIENT
  Sex: Female

DRUGS (1)
  1. IBRANCE [Suspect]
     Active Substance: PALBOCICLIB
     Dosage: UNK UNK, CYCLIC
     Route: 048

REACTIONS (1)
  - Renal impairment [Recovered/Resolved]
